FAERS Safety Report 4333138-8 (Version None)
Quarter: 2004Q2

REPORT INFORMATION
  Report Type: 
  Country: None (occurrence: None)
  Receive Date: 20040406
  Receipt Date: 20040206
  Transmission Date: 20050107
  Serious: Yes (Death, Life-Threatening)
  Sender: FDA-Public Use
  Company Number: FR-BRISTOL-MYERS SQUIBB COMPANY-12504809

PATIENT
  Age: 22 Year
  Sex: Male

DRUGS (16)
  1. ENDOXAN [Suspect]
     Indication: ACUTE LYMPHOCYTIC LEUKAEMIA
     Route: 042
     Dates: start: 20031227, end: 20031227
  2. METHOTREXATE [Suspect]
     Indication: ACUTE LYMPHOCYTIC LEUKAEMIA
     Route: 037
     Dates: start: 20031231, end: 20031231
  3. ONCOVIN [Suspect]
     Indication: ACUTE LYMPHOCYTIC LEUKAEMIA
     Route: 042
     Dates: start: 20031227, end: 20031227
  4. CERUBIDINE [Suspect]
     Indication: ACUTE LYMPHOCYTIC LEUKAEMIA
     Route: 042
     Dates: start: 20031227, end: 20031229
  5. ARACYTINE [Suspect]
     Indication: ACUTE LYMPHOCYTIC LEUKAEMIA
     Route: 037
     Dates: start: 20031231, end: 20031231
  6. SOLU-MEDROL [Concomitant]
     Route: 042
     Dates: start: 20031220
  7. ROCEPHIN [Concomitant]
     Dates: start: 20031220, end: 20031227
  8. CIPROFLOXACIN HCL [Concomitant]
     Dates: start: 20031220, end: 20031227
  9. PRIMPERAN INJ [Concomitant]
     Dates: start: 20031220
  10. VISCERALGINE [Concomitant]
     Dates: start: 20031221
  11. ALLOPURINOL TAB [Concomitant]
     Dates: start: 20031221
  12. MOPRAL [Concomitant]
     Dates: start: 20031224, end: 20031226
  13. DEBRIDAT [Concomitant]
     Dates: start: 20031227
  14. DUPHALAC SYRUP [Concomitant]
     Dates: start: 20031227
  15. ZANTAC [Concomitant]
     Dates: start: 20031227
  16. ACUPAN [Concomitant]
     Dates: start: 20031227

REACTIONS (3)
  - BONE MARROW DEPRESSION [None]
  - SEPTIC SHOCK [None]
  - STOMATITIS [None]
